FAERS Safety Report 18539809 (Version 1)
Quarter: 2020Q4

REPORT INFORMATION
  Report Type: Spontaneous
  Country: US (occurrence: US)
  Receive Date: 20201030
  Receipt Date: 20201030
  Transmission Date: 20210114
  Serious: Yes (Other)
  Sender: FDA-Public Use
  Company Number: None

PATIENT
  Age: 5 Decade
  Sex: 0

DRUGS (4)
  1. DANOPREVIR. [Suspect]
     Active Substance: DANOPREVIR
     Indication: COVID-19
     Dosage: 100/100 MG BD/PO 7 DAYS
     Route: 048
     Dates: start: 2020
  2. INTERFERON ALFA NOS [Suspect]
     Active Substance: INTERFERON ALFA-2A OR INTERFERON ALFA-2B
     Indication: COVID-19
     Route: 055
     Dates: start: 2020
  3. LOPINAVIR/RITONAVIR [Suspect]
     Active Substance: LOPINAVIR\RITONAVIR
     Indication: COVID-19
     Dates: start: 2020
  4. RITONAVIR. [Suspect]
     Active Substance: RITONAVIR

REACTIONS (2)
  - Treatment failure [None]
  - Product use in unapproved indication [None]
